FAERS Safety Report 5000905-7 (Version None)
Quarter: 2006Q2

REPORT INFORMATION
  Report Type: 
  Country: None (occurrence: None)
  Receive Date: 20060512
  Receipt Date: 20060224
  Transmission Date: 20061013
  Serious: No
  Sender: FDA-Public Use
  Company Number: US-GLAXOSMITHKLINE-A0595098A

PATIENT
  Age: 34 Year
  Sex: Female

DRUGS (8)
  1. NABUMETONE [Suspect]
     Indication: OPTIC NEURITIS
     Dosage: 1500MG PER DAY
     Route: 048
     Dates: start: 20060222
  2. AVANDIA [Concomitant]
  3. NOVOLOG [Concomitant]
  4. DIOVAN [Concomitant]
  5. LOTREL [Concomitant]
  6. ZOCOR [Concomitant]
  7. PREDNISONE TAB [Concomitant]
  8. BENADRYL [Concomitant]

REACTIONS (2)
  - DYSPNOEA [None]
  - RASH [None]
